FAERS Safety Report 15870215 (Version 1)
Quarter: 2019Q1

REPORT INFORMATION
  Report Type: Spontaneous
  Country: US (occurrence: US)
  Receive Date: 20190125
  Receipt Date: 20190125
  Transmission Date: 20190417
  Serious: No
  Sender: FDA-Public Use
  Company Number: US-ACORDA-ACO_148159_2018

PATIENT
  Sex: Male

DRUGS (3)
  1. AVONEX [Suspect]
     Active Substance: INTERFERON BETA-1A
     Indication: MULTIPLE SCLEROSIS
     Dosage: UNK
     Route: 065
  2. AMPYRA [Suspect]
     Active Substance: DALFAMPRIDINE
     Indication: GAIT DISTURBANCE
     Dosage: 10 MG, Q 12 HRS
     Route: 048
     Dates: start: 20180125
  3. AMPYRA [Suspect]
     Active Substance: DALFAMPRIDINE
     Indication: HYPOAESTHESIA

REACTIONS (20)
  - Pain [Unknown]
  - Psoriatic arthropathy [Unknown]
  - Product use in unapproved indication [Unknown]
  - Muscle strain [Unknown]
  - Vomiting [Unknown]
  - Paraesthesia [Unknown]
  - Back disorder [Unknown]
  - Nerve compression [Unknown]
  - Speech disorder [Unknown]
  - Malaise [Unknown]
  - Flushing [Unknown]
  - Gait disturbance [Unknown]
  - Condition aggravated [Unknown]
  - Cognitive disorder [Unknown]
  - Nausea [Unknown]
  - Asthenia [Unknown]
  - Multiple sclerosis relapse [Unknown]
  - Peripheral swelling [Unknown]
  - Stress at work [Unknown]
  - Adverse drug reaction [Unknown]
